FAERS Safety Report 10036144 (Version 1)
Quarter: 2014Q1

REPORT INFORMATION
  Report Type: Spontaneous
  Country: US (occurrence: None)
  Receive Date: 20140306
  Receipt Date: 20140306
  Transmission Date: 20141002
  Serious: Yes (Other)
  Sender: FDA-Public Use
  Company Number: 163-21880-13121087

PATIENT
  Age: 80 Year
  Sex: Female

DRUGS (7)
  1. REVLIMID (LENALIDOMIDE) (10 MILLIGRAM, CAPSULES) [Suspect]
     Indication: PLASMA CELL MYELOMA
     Dosage: 10 MG, 21 IN 21 D, PO
     Route: 048
     Dates: start: 20120406, end: 20131115
  2. PRILOSEC (OMEPRAZOLE) (UNKNOWN) [Concomitant]
  3. ROPINIROLE (ROPINIROLE) (UNKNOWN) [Concomitant]
  4. KLOR-CON (POTASSIUM CHLORIDE) (UNKNOWN) [Concomitant]
  5. HYDROCHLOROTHIAZIDE (HYDROCHLOROTHIAZIDE) (UNKNOWN) [Concomitant]
  6. METOPROLOL (METOPROLOL) (UNKNOWN) [Concomitant]
  7. CLONIDIE (CLONIDINE) (UNKNOWN) [Concomitant]

REACTIONS (1)
  - Gastric disorder [None]
